FAERS Safety Report 17478589 (Version 2)
Quarter: 2020Q1

REPORT INFORMATION
  Report Type: Report from Study
  Country: HU (occurrence: HU)
  Receive Date: 20200228
  Receipt Date: 20200330
  Transmission Date: 20200409
  Serious: Yes (Hospitalization, Other)
  Sender: FDA-Public Use
  Company Number: HU-MYLANLABS-2020M1021527

PATIENT
  Age: 49 Year
  Sex: Male

DRUGS (15)
  1. IODIXANOL. [Suspect]
     Active Substance: IODIXANOL
     Indication: ACUTE MYOCARDIAL INFARCTION
     Dosage: 165 MILLILITER, QD (165 ML)
     Route: 065
     Dates: start: 20191124
  2. PRASUGREL. [Suspect]
     Active Substance: PRASUGREL
     Indication: ACUTE MYOCARDIAL INFARCTION
     Dosage: 10 MILLIGRAM, QD
     Route: 048
     Dates: start: 20191124, end: 20191127
  3. ACETYLSALICYLIC ACID [Concomitant]
     Active Substance: ASPIRIN
     Indication: ACUTE MYOCARDIAL INFARCTION
     Dosage: 300 MILLIGRAM, TOTAL (300 MG, 1X)
     Route: 048
     Dates: start: 20191124, end: 20191124
  4. RAMIPRIL. [Suspect]
     Active Substance: RAMIPRIL
     Indication: ACUTE MYOCARDIAL INFARCTION
     Dosage: 2.5 MILLIGRAM, QD
     Route: 048
     Dates: start: 20191124, end: 20191127
  5. GLUCOSE W/GLYCERYL TRINITRATE [Concomitant]
     Indication: ACUTE MYOCARDIAL INFARCTION
     Dosage: 8 MILLIGRAM, QD
     Route: 060
     Dates: start: 20191124, end: 20191124
  6. IOMERON [Concomitant]
     Active Substance: IOMEPROL
     Indication: COMPUTERISED TOMOGRAM
     Dosage: 80 MILLILITER (80 ML)
     Route: 065
     Dates: start: 20191126
  7. BISOPROLOL [Concomitant]
     Active Substance: BISOPROLOL
     Indication: ACUTE MYOCARDIAL INFARCTION
     Dosage: 1.25 MILLIGRAM, QD
     Route: 048
     Dates: start: 20191124
  8. PRASUGREL. [Suspect]
     Active Substance: PRASUGREL
     Dosage: 60 MILLIGRAM, TOTAL (60 MG, 1X)
     Route: 048
     Dates: start: 20191124, end: 20191124
  9. PANTOPRAZOLE SODIUM. [Suspect]
     Active Substance: PANTOPRAZOLE SODIUM
     Indication: PROPHYLAXIS AGAINST GASTROINTESTINAL ULCER
     Dosage: 40 MILLIGRAM, QD
     Route: 048
     Dates: start: 20191124
  10. ACETYLSALICYLIC ACID [Concomitant]
     Active Substance: ASPIRIN
     Dosage: 100 MILLIGRAM, QD
     Route: 048
     Dates: start: 20191124
  11. HEPARINE                           /00027701/ [Concomitant]
     Active Substance: HEPARIN SODIUM
     Indication: PERCUTANEOUS CORONARY INTERVENTION
     Dosage: 1 MILLILITER, QD (1 DAY DOSE: 1 ML ONCE)
     Route: 042
     Dates: start: 20191124, end: 20191124
  12. CLOPIDOGREL [Concomitant]
     Active Substance: CLOPIDOGREL BISULFATE
     Indication: ACUTE MYOCARDIAL INFARCTION
     Dosage: 600 MILLIGRAM, QD (1 DAY DOSE: 600 MG ONCE)
     Route: 048
     Dates: start: 20191124, end: 20191124
  13. ATORVASTATIN [Concomitant]
     Active Substance: ATORVASTATIN
     Indication: ACUTE MYOCARDIAL INFARCTION
     Dosage: 80 MILLIGRAM, QD
     Route: 048
     Dates: start: 20191124
  14. PANTOPRAZOLE [Suspect]
     Active Substance: PANTOPRAZOLE
     Indication: PRODUCT USED FOR UNKNOWN INDICATION
     Dosage: UNK UNK, UNK
  15. LIDOCAINE. [Concomitant]
     Active Substance: LIDOCAINE
     Indication: LOCAL ANAESTHESIA
     Dosage: 1 MILLILITER, QD
     Route: 042
     Dates: start: 20191124, end: 20191124

REACTIONS (1)
  - Toxic skin eruption [Recovered/Resolved]

NARRATIVE: CASE EVENT DATE: 20191127
